FAERS Safety Report 19488710 (Version 4)
Quarter: 2021Q4

REPORT INFORMATION
  Report Type: Spontaneous
  Country: US (occurrence: US)
  Receive Date: 20210702
  Receipt Date: 20211213
  Transmission Date: 20220303
  Serious: Yes (Disabling, Other)
  Sender: FDA-Public Use
  Company Number: US-PFIZER INC-2018100853

PATIENT
  Age: 72 Year
  Sex: Female

DRUGS (2)
  1. XELJANZ XR [Suspect]
     Active Substance: TOFACITINIB CITRATE
     Indication: Ligament sprain
     Dosage: 11 MG, 1X/DAY
     Route: 048
     Dates: start: 2015
  2. XELJANZ XR [Suspect]
     Active Substance: TOFACITINIB CITRATE
     Indication: Rheumatoid arthritis

REACTIONS (12)
  - Peripheral swelling [Unknown]
  - Neoplasm malignant [Unknown]
  - Swelling [Unknown]
  - Condition aggravated [Unknown]
  - Gait inability [Unknown]
  - Balance disorder [Unknown]
  - Body height decreased [Unknown]
  - Arthritis [Unknown]
  - Arthropathy [Unknown]
  - Sensitivity to weather change [Unknown]
  - Memory impairment [Unknown]
  - Confusional state [Unknown]
